FAERS Safety Report 4370217-3 (Version None)
Quarter: 2004Q2

REPORT INFORMATION
  Report Type: 
  Country: None (occurrence: None)
  Receive Date: 20040603
  Receipt Date: 20040415
  Transmission Date: 20050107
  Serious: No
  Sender: FDA-Public Use
  Company Number: US-BRISTOL-MYERS SQUIBB COMPANY-12561759

PATIENT
  Age: 3 Decade
  Sex: Male

DRUGS (4)
  1. ABILIFY [Suspect]
     Indication: SCHIZOPHRENIA
     Route: 048
  2. PROZAC [Interacting]
  3. ZYPREXA [Concomitant]
  4. TRILEPTAL [Concomitant]

REACTIONS (2)
  - DRUG INTERACTION [None]
  - NAUSEA [None]
